FAERS Safety Report 18073703 (Version 5)
Quarter: 2022Q3

REPORT INFORMATION
  Report Type: Report from Study
  Country: FR (occurrence: FR)
  Receive Date: 20200727
  Receipt Date: 20220705
  Transmission Date: 20221027
  Serious: No
  Sender: FDA-Public Use
  Company Number: FR-SHIRE-FR201850797

PATIENT
  Age: 54 Year
  Sex: Male

DRUGS (8)
  1. TEDUGLUTIDE [Suspect]
     Active Substance: TEDUGLUTIDE
     Indication: Short-bowel syndrome
     Dosage: 3.3 MILLIGRAM, QD
     Route: 042
     Dates: start: 20160317, end: 201810
  2. TEDUGLUTIDE [Suspect]
     Active Substance: TEDUGLUTIDE
     Indication: Short-bowel syndrome
     Dosage: 3.3 MILLIGRAM, QD
     Route: 042
     Dates: start: 20160317, end: 201810
  3. TEDUGLUTIDE [Suspect]
     Active Substance: TEDUGLUTIDE
     Indication: Short-bowel syndrome
     Dosage: 3.3 MILLIGRAM, QD
     Route: 042
     Dates: start: 20160317, end: 201810
  4. TEDUGLUTIDE [Suspect]
     Active Substance: TEDUGLUTIDE
     Indication: Short-bowel syndrome
     Dosage: 3.3 MILLIGRAM, QD
     Route: 042
     Dates: start: 20160317, end: 201810
  5. LEVOCARNITINE [Concomitant]
     Active Substance: LEVOCARNITINE
     Indication: Vitamin supplementation
     Dosage: 1 GRAM, TID
     Route: 048
     Dates: start: 202104, end: 202105
  6. NORFLOXACIN [Concomitant]
     Active Substance: NORFLOXACIN
     Indication: Gastrointestinal disorder
     Dosage: 800 MILLIGRAM, QD
     Route: 048
     Dates: start: 202104
  7. VITAMIN C [Concomitant]
     Active Substance: ASCORBIC ACID
     Indication: Vitamin supplementation
     Dosage: 1 DOSAGE FORM, QD
     Route: 048
     Dates: start: 202104, end: 202105
  8. VITAMIN E [Concomitant]
     Active Substance: .ALPHA.-TOCOPHEROL
     Indication: Vitamin supplementation
     Dosage: 100 MILLIGRAM, MONTHLY
     Route: 048
     Dates: start: 202104

REACTIONS (3)
  - Pseudopolyp [Not Recovered/Not Resolved]
  - Pseudopolyposis [Not Recovered/Not Resolved]
  - Duodenal polyp [Not Recovered/Not Resolved]

NARRATIVE: CASE EVENT DATE: 20180404
